FAERS Safety Report 7693271-X (Version None)
Quarter: 2011Q3

REPORT INFORMATION
  Report Type: 
  Country: None (occurrence: None)
  Receive Date: 20110819
  Receipt Date: 20110805
  Transmission Date: 20111222
  Serious: Yes (Hospitalization, Other)
  Sender: FDA-Public Use
  Company Number: PHHY2011US57647

PATIENT
  Sex: Female

DRUGS (10)
  1. KLOR-CON [Concomitant]
     Dosage: 10 MEQ, UNK
  2. ALPRAZOLAM [Concomitant]
     Dosage: 5 MG, UNK
  3. VICODIN [Concomitant]
     Dosage: 1 DF, UNK
  4. DIPHENOXYLATE [Concomitant]
     Dosage: UNK UKN, UNK
  5. DOC-Q-LACE [Concomitant]
     Dosage: 100 MG, PRN
  6. ASPIRIN [Concomitant]
     Dosage: 81 MG, UNK
  7. HYDROCHLOROTHIAZIDE [Concomitant]
     Dosage: 25 MG, UNK
  8. METOPROLOL [Concomitant]
     Dosage: 25 MG, UNK
  9. CRESTOR [Concomitant]
     Dosage: 10 MG, UNK
  10. LOTENSIN [Suspect]
     Dosage: 40 MG, BID

REACTIONS (4)
  - DYSPNOEA [None]
  - HEART RATE INCREASED [None]
  - ABDOMINAL DISCOMFORT [None]
  - BLOOD PRESSURE INCREASED [None]
